FAERS Safety Report 9012194 (Version 5)
Quarter: 2013Q3

REPORT INFORMATION
  Report Type: Spontaneous
  Country: BR (occurrence: BR)
  Receive Date: 20130114
  Receipt Date: 20130722
  Transmission Date: 20140515
  Serious: Yes (Other)
  Sender: FDA-Public Use
  Company Number: BR-AMGEN-BRACT2011069928

PATIENT
  Age: 59 Year
  Sex: Male
  Weight: 71 kg

DRUGS (8)
  1. ENBREL [Suspect]
     Indication: RHEUMATOID ARTHRITIS
     Dosage: 25 MG, 2X/WEEK
     Route: 058
     Dates: start: 20101122
  2. ENBREL [Suspect]
     Dosage: 50 MG, QWK
     Route: 058
  3. ENBREL [Suspect]
     Dosage: 25 MG, 2 TIMES/WK
     Route: 058
     Dates: end: 201208
  4. ENBREL [Suspect]
     Dosage: 25 MG, 2X/WEEK
     Route: 058
     Dates: start: 201112
  5. ENBREL [Suspect]
     Dosage: 50 MG, QWK
     Route: 058
     Dates: start: 201112
  6. ENBREL [Suspect]
     Dosage: 50 MG, ONCE WEEKLY
     Route: 058
     Dates: start: 2011
  7. ALLEGRA [Suspect]
     Indication: HYPERSENSITIVITY
     Dosage: UNK
  8. MELOXICAM [Concomitant]
     Indication: PAIN
     Dosage: 7.5 MG, AS NEEDED

REACTIONS (12)
  - Pruritus [Recovering/Resolving]
  - Localised infection [Unknown]
  - Injection site haematoma [Unknown]
  - Injection site pain [Unknown]
  - Injection site haemorrhage [Unknown]
  - Hypersensitivity [Recovering/Resolving]
  - Secretion discharge [Recovering/Resolving]
  - Ankylosing spondylitis [Unknown]
  - Drug ineffective [Unknown]
  - Incorrect product storage [Unknown]
  - Sciatica [Unknown]
  - Sluggishness [Not Recovered/Not Resolved]
